FAERS Safety Report 10172601 (Version 2)
Quarter: 2014Q2

REPORT INFORMATION
  Report Type: Report from Study
  Country: US (occurrence: US)
  Receive Date: 20140515
  Receipt Date: 20140519
  Transmission Date: 20141212
  Serious: Yes (Other)
  Sender: FDA-Public Use
  Company Number: US-ABBVIE-14P-163-1234490-00

PATIENT
  Age: 49 Year
  Sex: Male
  Weight: 70.37 kg

DRUGS (4)
  1. HUMIRA [Suspect]
     Indication: RHEUMATOID ARTHRITIS
     Dates: start: 201001, end: 20131013
  2. HUMIRA [Suspect]
     Dates: start: 201403
  3. DICLOFENAC [Concomitant]
     Indication: RHEUMATOID ARTHRITIS
  4. OXYCODONE [Concomitant]
     Indication: PAIN

REACTIONS (4)
  - Wound [Recovered/Resolved]
  - Limb crushing injury [Recovered/Resolved]
  - Hand fracture [Recovered/Resolved]
  - Viral sinusitis [Recovered/Resolved]
